FAERS Safety Report 8290599-X (Version None)
Quarter: 2012Q2

REPORT INFORMATION
  Report Type: 
  Country: None (occurrence: None)
  Receive Date: 20120413
  Receipt Date: 20120413
  Transmission Date: 20120825
  Serious: Yes (Other)
  Sender: FDA-Public Use
  Company Number: None

PATIENT
  Sex: Female

DRUGS (3)
  1. CORTISONE INJECTIONS [Concomitant]
  2. AVONEX [Suspect]
     Indication: MULTIPLE SCLEROSIS
     Dosage: AVONEX QWEEK IM
     Route: 030
     Dates: start: 20091124, end: 20120227
  3. AVONEX [Suspect]
     Indication: MULTIPLE SCLEROSIS
     Dosage: AVONEX QWEEK IM
     Route: 030
     Dates: start: 20120408

REACTIONS (5)
  - SKIN DISCOLOURATION [None]
  - FALL [None]
  - BURSA DISORDER [None]
  - MENISCUS LESION [None]
  - ARTHRALGIA [None]
